FAERS Safety Report 12697937 (Version 1)
Quarter: 2016Q3

REPORT INFORMATION
  Report Type: Spontaneous
  Country: FR (occurrence: FR)
  Receive Date: 20160830
  Receipt Date: 20160830
  Transmission Date: 20161109
  Serious: Yes (Hospitalization)
  Sender: FDA-Public Use
  Company Number: FR-PFIZER INC-2016399192

PATIENT
  Age: 61 Year
  Sex: Female

DRUGS (9)
  1. ZYVOXID [Concomitant]
     Active Substance: LINEZOLID
     Dosage: UNK
  2. TIENAM [Concomitant]
     Active Substance: CILASTATIN SODIUM\IMIPENEM
     Dosage: UNK
  3. VFEND [Suspect]
     Active Substance: VORICONAZOLE
     Indication: FUNGAL INFECTION
     Dosage: UNK
     Dates: start: 201409
  4. LASILIX /00032601/ [Suspect]
     Active Substance: FUROSEMIDE
     Dosage: UNK
     Dates: start: 201409
  5. CIPROFLOXACINE KABI [Concomitant]
     Active Substance: CIPROFLOXACIN
     Dosage: 400 MG/200 ML
  6. AMBISOME [Concomitant]
     Active Substance: AMPHOTERICIN B
     Dosage: UNK
  7. CANCIDAS [Suspect]
     Active Substance: CASPOFUNGIN ACETATE
     Indication: SYSTEMIC CANDIDA
     Dosage: 70 MG, 1X/DAY
     Route: 042
     Dates: start: 201409
  8. INEXIUM /01479302/ [Suspect]
     Active Substance: ESOMEPRAZOLE MAGNESIUM
     Dosage: UNK
     Dates: start: 201409
  9. AMIKACINE /00391002/ [Concomitant]
     Active Substance: AMIKACIN
     Dosage: UNK

REACTIONS (6)
  - Blister [Recovered/Resolved]
  - Acute generalised exanthematous pustulosis [Recovered/Resolved]
  - Rash maculo-papular [Recovered/Resolved]
  - Oedema peripheral [Recovered/Resolved]
  - Skin exfoliation [Recovered/Resolved]
  - Eosinophilia [Recovered/Resolved]

NARRATIVE: CASE EVENT DATE: 20140919
